FAERS Safety Report 15613912 (Version 2)
Quarter: 2019Q2

REPORT INFORMATION
  Report Type: Report from Study
  Country: US (occurrence: US)
  Receive Date: 20181113
  Receipt Date: 20190412
  Transmission Date: 20190711
  Serious: Yes (Hospitalization)
  Sender: FDA-Public Use
  Company Number: US-ACTELION-A-NJ2018-175150

PATIENT
  Sex: Female

DRUGS (18)
  1. OMEPRAZOLE. [Concomitant]
     Active Substance: OMEPRAZOLE
  2. ALENDRONATE SODIUM. [Concomitant]
     Active Substance: ALENDRONATE SODIUM
  3. CLARITIN [Concomitant]
     Active Substance: LORATADINE
  4. TRACLEER [Suspect]
     Active Substance: BOSENTAN
     Indication: PULMONARY ARTERIAL HYPERTENSION
     Dosage: 125 MG, UNK
     Route: 048
  5. MUCINEX [Concomitant]
     Active Substance: GUAIFENESIN
  6. PROMETHAZINE - CODEINE [Concomitant]
     Active Substance: CODEINE\PROMETHAZINE
  7. TRIMETHOPRIM. [Concomitant]
     Active Substance: TRIMETHOPRIM
  8. CEFDINIR. [Concomitant]
     Active Substance: CEFDINIR
  9. CEFUROXIME. [Concomitant]
     Active Substance: CEFUROXIME
  10. ASPIRIN. [Concomitant]
     Active Substance: ASPIRIN
     Dosage: 81 MG, UNK
  11. SILDENAFIL. [Concomitant]
     Active Substance: SILDENAFIL
  12. ADVAIR HFA [Concomitant]
     Active Substance: FLUTICASONE PROPIONATE\SALMETEROL XINAFOATE
  13. ESTRADIOL. [Concomitant]
     Active Substance: ESTRADIOL
  14. FERROUS SULFATE. [Concomitant]
     Active Substance: FERROUS SULFATE
  15. FLONASE [Concomitant]
     Active Substance: FLUTICASONE PROPIONATE
  16. RANITIDINE. [Concomitant]
     Active Substance: RANITIDINE
  17. PREDNISONE. [Concomitant]
     Active Substance: PREDNISONE
  18. VITAMIN D2 [Concomitant]
     Active Substance: ERGOCALCIFEROL

REACTIONS (3)
  - Urinary tract infection [Unknown]
  - Upper respiratory tract infection [Recovering/Resolving]
  - Malaise [Not Recovered/Not Resolved]
